FAERS Safety Report 9862611 (Version 1)
Quarter: 2014Q1

REPORT INFORMATION
  Report Type: Spontaneous
  Country: US (occurrence: None)
  Receive Date: 20140130
  Receipt Date: 20140130
  Transmission Date: 20141002
  Serious: Yes (Death)
  Sender: FDA-Public Use
  Company Number: 2014AP000607

PATIENT
  Age: 66 Year
  Sex: Female

DRUGS (1)
  1. METFORMIN HCL TABLETS [Suspect]
     Dosage: ; PO
     Route: 048

REACTIONS (6)
  - Lactic acidosis [None]
  - Urinary tract infection [None]
  - Tachypnoea [None]
  - Hyperventilation [None]
  - Arteriosclerosis coronary artery [None]
  - Anion gap [None]
